FAERS Safety Report 22022708 (Version 3)
Quarter: 2023Q1

REPORT INFORMATION
  Report Type: Spontaneous
  Country: US (occurrence: US)
  Receive Date: 20230222
  Receipt Date: 20230330
  Transmission Date: 20230417
  Serious: No
  Sender: FDA-Public Use
  Company Number: US-PFIZER INC-PV202300032889

PATIENT
  Age: 63 Year
  Sex: Male

DRUGS (1)
  1. SOMAVERT [Suspect]
     Active Substance: PEGVISOMANT
     Indication: Acromegaly
     Dosage: 30 MG FOUR TIMES A WK

REACTIONS (4)
  - Therapeutic product effect incomplete [Unknown]
  - Off label use [Unknown]
  - Cardiac disorder [Unknown]
  - Renal disorder [Unknown]
